FAERS Safety Report 7350178-5 (Version None)
Quarter: 2011Q1

REPORT INFORMATION
  Report Type: 
  Country: None (occurrence: None)
  Receive Date: 20110314
  Receipt Date: 20110304
  Transmission Date: 20110831
  Serious: Yes (Hospitalization)
  Sender: FDA-Public Use
  Company Number: B0701480A

PATIENT
  Sex: Female

DRUGS (8)
  1. UNKNOWN DRUG [Suspect]
     Route: 065
  2. MINOCYCLINE HCL [Concomitant]
     Dosage: 200MG PER DAY
     Route: 042
     Dates: start: 20091210, end: 20091215
  3. ACETAMINOPHEN [Concomitant]
  4. SERETIDE [Suspect]
     Indication: ASTHMA
     Dosage: 1000MCG PER DAY
     Route: 055
     Dates: start: 20091211, end: 20091216
  5. NEOPHYLLIN INJECTION [Concomitant]
     Indication: ASTHMA
     Dosage: 250MG PER DAY
     Route: 042
     Dates: start: 20091210, end: 20091211
  6. PICILLIBACTA [Concomitant]
     Dosage: 6G PER DAY
     Route: 042
     Dates: start: 20091210, end: 20091215
  7. THEO-DUR [Concomitant]
     Indication: ASTHMA
     Dosage: 400MG PER DAY
     Route: 048
     Dates: start: 20091211, end: 20091214
  8. RELENZA [Suspect]
     Indication: ASTHMA
     Dosage: 10MG PER DAY
     Route: 055
     Dates: start: 20091206, end: 20091210

REACTIONS (8)
  - PRURITUS [None]
  - DRUG ERUPTION [None]
  - PYREXIA [None]
  - ASTHMA [None]
  - PNEUMONIA [None]
  - ERYTHEMA [None]
  - CONVULSION [None]
  - RASH [None]
